FAERS Safety Report 22645598 (Version 1)
Quarter: 2023Q2

REPORT INFORMATION
  Report Type: Spontaneous
  Country: UZ (occurrence: UZ)
  Receive Date: 20230627
  Receipt Date: 20230627
  Transmission Date: 20230721
  Serious: Yes (Other)
  Sender: FDA-Public Use
  Company Number: UZ-JNJFOC-20230647795

PATIENT
  Age: 62 Year
  Sex: Male

DRUGS (5)
  1. SIRTURO [Suspect]
     Active Substance: BEDAQUILINE FUMARATE
     Indication: Pulmonary tuberculosis
     Dosage: 400 UNSPECIFIED UNITS
     Route: 048
     Dates: start: 20230418, end: 20230501
  2. SIRTURO [Suspect]
     Active Substance: BEDAQUILINE FUMARATE
     Dosage: 200 UNSPECIFIED UNITS
     Route: 048
     Dates: start: 20230503, end: 20230608
  3. PRETOMANID [Suspect]
     Active Substance: PRETOMANID
     Indication: Pulmonary tuberculosis
     Dosage: 200  UNSPECIFIED UNITS
     Route: 065
     Dates: start: 20230418, end: 20230608
  4. LINEZOLID [Suspect]
     Active Substance: LINEZOLID
     Indication: Pulmonary tuberculosis
     Dosage: 600  UNSPECIFIED UNITS
     Route: 048
     Dates: start: 20230418, end: 20230608
  5. MOXIFLOXACIN [Suspect]
     Active Substance: MOXIFLOXACIN
     Indication: Pulmonary tuberculosis
     Dosage: 400 UNSPECIFIED UNITS
     Route: 048
     Dates: start: 20230418, end: 20230608

REACTIONS (4)
  - Hepatitis toxic [Not Recovered/Not Resolved]
  - Cholecystitis [Not Recovered/Not Resolved]
  - Splenomegaly [Not Recovered/Not Resolved]
  - Liver disorder [Not Recovered/Not Resolved]
